FAERS Safety Report 8015670-9 (Version None)
Quarter: 2011Q4

REPORT INFORMATION
  Report Type: 
  Country: None (occurrence: None)
  Receive Date: 20111230
  Receipt Date: 20111219
  Transmission Date: 20120403
  Serious: Yes (Death)
  Sender: FDA-Public Use
  Company Number: US-PFIZER INC-2011311756

PATIENT
  Age: 33 Year
  Sex: Female

DRUGS (6)
  1. CODEINE PHOSPHATE AND PSEUDOEPHEDRINE HYDROCHLORIDE [Suspect]
     Dosage: UNK
     Route: 048
  2. LORAZEPAM [Suspect]
     Dosage: UNK
     Route: 048
  3. ALPRAZOLAM [Suspect]
     Dosage: UNK
     Route: 048
  4. PROMETHAZINE [Suspect]
     Dosage: UNK
     Route: 048
  5. CLONIDINE [Suspect]
     Dosage: UNK
     Route: 048
  6. ETHANOL [Suspect]
     Dosage: UNK
     Route: 048

REACTIONS (3)
  - CARDIAC ARREST [None]
  - RESPIRATORY ARREST [None]
  - COMPLETED SUICIDE [None]
